FAERS Safety Report 12964311 (Version 1)
Quarter: 2016Q4

REPORT INFORMATION
  Report Type: Spontaneous
  Country: US (occurrence: US)
  Receive Date: 20161122
  Receipt Date: 20161122
  Transmission Date: 20170207
  Serious: No
  Sender: FDA-Public Use
  Company Number: US-PFIZER INC-2016538517

PATIENT
  Sex: Female
  Weight: 70.31 kg

DRUGS (5)
  1. LYRICA [Suspect]
     Active Substance: PREGABALIN
     Indication: HERPES ZOSTER
     Dosage: 100 MG, DAILY (100MG EVERY NIGHT)
  2. LYRICA [Suspect]
     Active Substance: PREGABALIN
     Dosage: 100 MG, ALTERNATE DAY (100 MG EVERY OTHER NIGHT)
  3. HYDROCODONE [Concomitant]
     Active Substance: HYDROCODONE
     Indication: PAIN
     Dosage: 25 MG, 3X/DAY
     Route: 048
  4. LYRICA [Suspect]
     Active Substance: PREGABALIN
     Indication: FIBROMYALGIA
     Dosage: 200 MG, DAILY
     Route: 048
  5. PRILOSEC [Concomitant]
     Active Substance: OMEPRAZOLE MAGNESIUM
     Indication: ABDOMINAL DISCOMFORT
     Dosage: 40 MG, UNK

REACTIONS (23)
  - Erythema [Unknown]
  - Speech disorder [Unknown]
  - Agitation [Not Recovered/Not Resolved]
  - Confusional state [Unknown]
  - Limb discomfort [Unknown]
  - Peripheral swelling [Not Recovered/Not Resolved]
  - Product use issue [Unknown]
  - Crying [Unknown]
  - Tremor [Unknown]
  - Feeling abnormal [Unknown]
  - Pupillary disorder [Unknown]
  - Oropharyngeal pain [Unknown]
  - Intentional product use issue [Unknown]
  - Panic attack [Not Recovered/Not Resolved]
  - Anger [Unknown]
  - Malaise [Unknown]
  - Influenza [Unknown]
  - Anxiety [Unknown]
  - Depressed mood [Unknown]
  - Insomnia [Unknown]
  - Fumbling [Unknown]
  - Weight increased [Unknown]
  - Nasopharyngitis [Unknown]
